FAERS Safety Report 6421563-0 (Version None)
Quarter: 2009Q4

REPORT INFORMATION
  Report Type: 
  Country: None (occurrence: None)
  Receive Date: 20091029
  Receipt Date: 20091029
  Transmission Date: 20100525
  Serious: Yes (Disabling)
  Sender: FDA-Public Use
  Company Number: None

PATIENT
  Age: 53 Year
  Sex: Female
  Weight: 89.8122 kg

DRUGS (10)
  1. GABAPENTIN [Suspect]
     Indication: TRIGEMINAL NEURALGIA
     Dosage: 3 DAILY ORAL
     Route: 048
     Dates: start: 20090926
  2. AVONEX [Concomitant]
  3. AMANTADINE [Concomitant]
  4. MIRAPEX [Concomitant]
  5. ZANAFLEX [Concomitant]
  6. SULFASALAZINE BUDEPRION [Concomitant]
  7. FOLIC ACID [Suspect]
  8. CITRCAL [Concomitant]
  9. ASPIRIN [Concomitant]
  10. OMEPRAZOLE [Concomitant]

REACTIONS (5)
  - DISORIENTATION [None]
  - DIZZINESS [None]
  - EUPHORIC MOOD [None]
  - HEADACHE [None]
  - TERMINAL INSOMNIA [None]
